FAERS Safety Report 8550947-X (Version None)
Quarter: 2012Q3

REPORT INFORMATION
  Report Type: 
  Country: None (occurrence: None)
  Receive Date: 20120723
  Receipt Date: 20120723
  Transmission Date: 20120928
  Serious: Yes (Other)
  Sender: FDA-Public Use
  Company Number: None

PATIENT
  Sex: Male
  Weight: 78.9 kg

DRUGS (2)
  1. FERAHEME [Suspect]
     Indication: DRUG INTOLERANCE
     Dosage: 510MG ONCE EVERY 7 DAYS IV BOLUS, 2 DOSES-REACTED WITH 2ND
     Route: 040
  2. FERAHEME [Suspect]
     Indication: IRON DEFICIENCY ANAEMIA
     Dosage: 510MG ONCE EVERY 7 DAYS IV BOLUS, 2 DOSES-REACTED WITH 2ND
     Route: 040

REACTIONS (2)
  - DYSPNOEA [None]
  - ERYTHEMA [None]
